FAERS Safety Report 23731039 (Version 2)
Quarter: 2024Q2

REPORT INFORMATION
  Report Type: Spontaneous
  Country: BR (occurrence: BR)
  Receive Date: 20240411
  Receipt Date: 20240620
  Transmission Date: 20240715
  Serious: Yes (Hospitalization, Other)
  Sender: FDA-Public Use
  Company Number: BR-SA-SAC20240409000030

PATIENT
  Age: 52 Year
  Sex: Male
  Weight: 71 kg

DRUGS (4)
  1. THYMOGLOBULIN [Suspect]
     Active Substance: LAPINE T-LYMPHOCYTE IMMUNE GLOBULIN
     Indication: Prophylaxis against transplant rejection
     Dosage: 225 MG, QD
     Route: 041
     Dates: start: 20240331, end: 20240331
  2. HYDROCORTISONE [Concomitant]
     Active Substance: HYDROCORTISONE\HYDROCORTISONE ACETATE
     Dosage: 300 MG, QD
     Route: 042
     Dates: start: 20240331, end: 20240331
  3. CEFAZOLIN [Concomitant]
     Active Substance: CEFAZOLIN
     Dosage: 1 G, Q8H
     Route: 042
     Dates: start: 20240331, end: 20240331
  4. DIPYRONE [Concomitant]
     Active Substance: DIPYRONE
     Dosage: 1 G, Q6H
     Route: 042
     Dates: start: 20240331, end: 20240331

REACTIONS (13)
  - Seizure [Recovered/Resolved]
  - Hyperhidrosis [Recovered/Resolved]
  - Sticky skin [Recovered/Resolved]
  - Drooling [Unknown]
  - Mean arterial pressure decreased [Unknown]
  - Blood glucose increased [Unknown]
  - Cold sweat [Unknown]
  - Salivary hypersecretion [Unknown]
  - Gliosis [Unknown]
  - Microangiopathy [Unknown]
  - Nasopharyngitis [Unknown]
  - Hypotension [Recovered/Resolved]
  - Malaise [Recovered/Resolved]

NARRATIVE: CASE EVENT DATE: 20240331
